FAERS Safety Report 4944967-1 (Version None)
Quarter: 2006Q1

REPORT INFORMATION
  Report Type: 
  Country: None (occurrence: None)
  Receive Date: 20060117
  Receipt Date: 20050615
  Transmission Date: 20060701
  Serious: Yes (Hospitalization)
  Sender: FDA-Public Use
  Company Number: A03200501804

PATIENT
  Age: 65 Year
  Sex: Female
  Weight: 72.5302 kg

DRUGS (5)
  1. PLAVIX [Suspect]
     Dosage: ORAL
     Route: 048
     Dates: end: 20050501
  2. NICODERM [Suspect]
     Indication: EX-SMOKER
     Dosage: TRANSDERMAL
     Route: 062
     Dates: start: 20050401, end: 20050401
  3. RAMIPRIL [Concomitant]
  4. HYDROCHLOROTHIAZIDE [Concomitant]
  5. GABAPENTIN [Concomitant]

REACTIONS (5)
  - ASTHENIA [None]
  - LOSS OF CONSCIOUSNESS [None]
  - LUNG DISORDER [None]
  - TRANSIENT ISCHAEMIC ATTACK [None]
  - VOMITING [None]
